FAERS Safety Report 6342256-4 (Version None)
Quarter: 2009Q3

REPORT INFORMATION
  Report Type: 
  Country: None (occurrence: None)
  Receive Date: 20090907
  Receipt Date: 20090828
  Transmission Date: 20100115
  Serious: Yes (Hospitalization)
  Sender: FDA-Public Use
  Company Number: US-BIOGENIDEC-168190

PATIENT
  Age: 68 Year
  Sex: Female

DRUGS (12)
  1. AVONEX [Suspect]
     Indication: MULTIPLE SCLEROSIS
     Route: 030
     Dates: start: 20010601
  2. BACLOFEN [Concomitant]
  3. KLONOPIN [Concomitant]
  4. SERZONE [Concomitant]
  5. NEURONTIN [Concomitant]
  6. ELAVIL [Concomitant]
  7. DITROPAN [Concomitant]
  8. INDERAL [Concomitant]
  9. SYNTHROID [Concomitant]
  10. ACTONEL [Concomitant]
  11. PREMPRO [Concomitant]
  12. PEPCID [Concomitant]

REACTIONS (7)
  - DIARRHOEA [None]
  - FALL [None]
  - GAIT DISTURBANCE [None]
  - MOBILITY DECREASED [None]
  - MULTIPLE SCLEROSIS [None]
  - MULTIPLE SCLEROSIS RELAPSE [None]
  - MUSCULOSKELETAL CHEST PAIN [None]
